FAERS Safety Report 6438530-3 (Version None)
Quarter: 2009Q4

REPORT INFORMATION
  Report Type: 
  Country: None (occurrence: None)
  Receive Date: 20091110
  Receipt Date: 20091028
  Transmission Date: 20100525
  Serious: Yes (Death)
  Sender: FDA-Public Use
  Company Number: SPV1-2009-01269

PATIENT
  Age: 15 Year

DRUGS (5)
  1. ELAPRASE [Suspect]
     Indication: MUCOPOLYSACCHARIDOSIS II
     Dosage: 2 DF, IV DRIP
     Route: 041
     Dates: start: 20071003, end: 20090325
  2. AMITRIPTYLENE (AMITRIPTYLINE HYDROCHLORIDE) [Concomitant]
  3. HYDROXYZINE [Concomitant]
  4. PHENOBARBITAL TAB [Concomitant]
  5. DEPAKENE [Concomitant]

REACTIONS (4)
  - ACUTE RESPIRATORY FAILURE [None]
  - CONVULSION [None]
  - JOINT RANGE OF MOTION DECREASED [None]
  - PNEUMONIA [None]
